FAERS Safety Report 8234083-8 (Version None)
Quarter: 2012Q1

REPORT INFORMATION
  Report Type: 
  Country: None (occurrence: None)
  Receive Date: 20120326
  Receipt Date: 20120326
  Transmission Date: 20120608
  Serious: Yes (Life-Threatening, Hospitalization)
  Sender: FDA-Public Use
  Company Number: None

PATIENT
  Age: 55 Year
  Sex: Female
  Weight: 113.85 kg

DRUGS (1)
  1. COPAXONE [Suspect]
     Indication: MULTIPLE SCLEROSIS
     Dosage: INJECT 20 MG
     Route: 058
     Dates: start: 20100313, end: 20120312

REACTIONS (4)
  - INJECTION SITE EXTRAVASATION [None]
  - DRUG HYPERSENSITIVITY [None]
  - INFLUENZA LIKE ILLNESS [None]
  - INJECTION SITE URTICARIA [None]
